FAERS Safety Report 8941245 (Version 1)
Quarter: 2012Q4

REPORT INFORMATION
  Report Type: Report from Study
  Country: GB (occurrence: US)
  Receive Date: 20121203
  Receipt Date: 20121203
  Transmission Date: 20130627
  Serious: Yes (Other)
  Sender: FDA-Public Use
  Company Number: US-BRISTOL-MYERS SQUIBB COMPANY-17155995

PATIENT
  Age: 51 Year
  Sex: Male
  Weight: 68.25 kg

DRUGS (8)
  1. CARBOPLATIN [Suspect]
     Indication: NON-SMALL CELL LUNG CANCER
     Dosage: 1df=5AUC
recent dose 28May08
     Route: 042
     Dates: start: 20080416
  2. TAXOL [Suspect]
     Indication: NON-SMALL CELL LUNG CANCER
     Dosage: recent dose 28May08
     Dates: start: 20080416
  3. BEVACIZUMAB [Suspect]
     Indication: NON-SMALL CELL LUNG CANCER
     Route: 042
     Dates: start: 20080416, end: 20080528
  4. ATENOLOL [Concomitant]
  5. ALTACE [Concomitant]
  6. CRESTOR [Concomitant]
  7. NIASPAN [Concomitant]
  8. ASPIRIN [Concomitant]

REACTIONS (1)
  - Jugular vein thrombosis [Recovered/Resolved]
